FAERS Safety Report 6306669-9 (Version None)
Quarter: 2009Q3

REPORT INFORMATION
  Report Type: 
  Country: None (occurrence: None)
  Receive Date: 20090811
  Receipt Date: 20090811
  Transmission Date: 20100115
  Serious: No
  Sender: FDA-Public Use
  Company Number: None

PATIENT
  Sex: Male
  Weight: 67.1324 kg

DRUGS (1)
  1. TOPIRAMATE [Suspect]

REACTIONS (7)
  - FEELING HOT [None]
  - HEADACHE [None]
  - PAIN [None]
  - PARAESTHESIA [None]
  - PRODUCT SUBSTITUTION ISSUE [None]
  - RASH [None]
  - RHEUMATOID ARTHRITIS [None]
